FAERS Safety Report 4928192-6 (Version None)
Quarter: 2006Q1

REPORT INFORMATION
  Report Type: 
  Country: None (occurrence: None)
  Receive Date: 20060223
  Receipt Date: 20060203
  Transmission Date: 20060701
  Serious: Yes (Death, Life-Threatening, Hospitalization)
  Sender: FDA-Public Use
  Company Number: DE200602000981

PATIENT
  Age: 15 Year
  Sex: Male
  Weight: 70 kg

DRUGS (11)
  1. XIGRIS [Suspect]
     Indication: MENINGOCOCCAL SEPSIS
     Dosage: 24 UG/KG/HR
     Dates: start: 20060128, end: 20060129
  2. CLAFORAN [Concomitant]
  3. ARIVEN (HEPARIN SODIUM) VIAL [Concomitant]
  4. NORADRENALINE (NOREPINEPHRINE) [Concomitant]
  5. DORMICUM ROCHE (MIDAZOLAM MALEATE) [Concomitant]
  6. SUFENTA [Concomitant]
  7. HYDROCORTISONE [Concomitant]
  8. OMEPRAZOLE [Concomitant]
  9. PENICILLIN G POTASSIUM (PENICILLIN G POTASSIUM UNKNOWN FORMULATION) [Concomitant]
  10. PLASMA [Concomitant]
  11. DOBUTREX (DOBUTAMINE HYDROCHLORIDE UNKNOWN FORMULATION) [Concomitant]

REACTIONS (6)
  - CIRCULATORY COLLAPSE [None]
  - CONDITION AGGRAVATED [None]
  - MENINGOCOCCAL SEPSIS [None]
  - MULTI-ORGAN FAILURE [None]
  - RENAL FAILURE [None]
  - RESPIRATORY FAILURE [None]
